FAERS Safety Report 5974156-3 (Version None)
Quarter: 2008Q4

REPORT INFORMATION
  Report Type: 
  Country: None (occurrence: None)
  Receive Date: 20081201
  Receipt Date: 20081119
  Transmission Date: 20090506
  Serious: Yes (Disabling, Other)
  Sender: FDA-Public Use
  Company Number: FR-PFIZER INC-2005137308

PATIENT
  Sex: Male
  Weight: 62 kg

DRUGS (1)
  1. SU-011,248 [Suspect]
     Indication: RENAL CANCER
     Route: 048
     Dates: start: 20050311, end: 20060807

REACTIONS (1)
  - DEAFNESS [None]
